FAERS Safety Report 6172852-9 (Version None)
Quarter: 2009Q2

REPORT INFORMATION
  Report Type: 
  Country: None (occurrence: None)
  Receive Date: 20090427
  Receipt Date: 20090417
  Transmission Date: 20091009
  Serious: Yes (Life-Threatening, Other)
  Sender: FDA-Public Use
  Company Number: 2009AL002403

PATIENT
  Age: 79 Year
  Sex: Female

DRUGS (4)
  1. PHENYTOIN [Suspect]
     Indication: EPILEPSY
     Dosage: ORAL
     Route: 048
  2. PHENOBARBITAL TAB [Suspect]
     Indication: EPILEPSY
     Dosage: ORAL
     Route: 048
  3. FEXOFENADINE [Concomitant]
  4. CHLORPHENTERMINE 65MG TAB [Concomitant]

REACTIONS (4)
  - CONDITION AGGRAVATED [None]
  - CONVULSION [None]
  - DRUG INTERACTION [None]
  - URTICARIA [None]
